FAERS Safety Report 9596740 (Version 2)
Quarter: 2014Q1

REPORT INFORMATION
  Report Type: Report from Study
  Country: US (occurrence: US)
  Receive Date: 20131004
  Receipt Date: 20140117
  Transmission Date: 20141002
  Serious: Yes (Hospitalization)
  Sender: FDA-Public Use
  Company Number: US-GLAXOSMITHKLINE-Z0018315A

PATIENT
  Age: 60 Year
  Sex: Male
  Weight: 83.1 kg

DRUGS (12)
  1. TRAMETINIB [Suspect]
     Indication: MALIGNANT MELANOMA
     Dosage: 2MG PER DAY
     Route: 048
     Dates: start: 20121008, end: 20130107
  2. DABRAFENIB [Suspect]
     Indication: MALIGNANT MELANOMA
     Dosage: 150MG TWICE PER DAY
     Route: 048
     Dates: start: 20121008, end: 20130105
  3. PREDNISONE [Concomitant]
     Indication: PROPHYLAXIS
     Dosage: 5MG PER DAY
  4. IBUPROFEN [Concomitant]
  5. ALLOPURINOL [Concomitant]
  6. ROSUVASTATIN [Concomitant]
  7. COLCHICINE [Concomitant]
  8. FLUTICASONE/SALMETEROL [Concomitant]
  9. MOMETASONE [Concomitant]
  10. OMEPRAZOLE [Concomitant]
  11. NEBIVOLOL [Concomitant]
  12. COENZYME Q10 [Concomitant]

REACTIONS (2)
  - Pyrexia [Recovered/Resolved]
  - Haemolytic uraemic syndrome [Recovered/Resolved]
